FAERS Safety Report 12504095 (Version 1)
Quarter: 2016Q2

REPORT INFORMATION
  Report Type: Spontaneous
  Country: US (occurrence: None)
  Receive Date: 20160627
  Receipt Date: 20160627
  Transmission Date: 20160815
  Serious: No
  Sender: FDA-Public Use
  Company Number: None

PATIENT
  Age: 73 Year
  Sex: Male
  Weight: 117.7 kg

DRUGS (1)
  1. INSULIN [Suspect]
     Active Substance: INSULIN NOS
     Indication: DIABETES MELLITUS
     Dosage: 80/60 UNITS BID SQ
     Route: 058
     Dates: start: 20160425, end: 20160622

REACTIONS (3)
  - Myalgia [None]
  - Back pain [None]
  - Arthralgia [None]

NARRATIVE: CASE EVENT DATE: 20160502
